FAERS Safety Report 22660574 (Version 10)
Quarter: 2025Q2

REPORT INFORMATION
  Report Type: Spontaneous
  Country: US (occurrence: US)
  Receive Date: 20230630
  Receipt Date: 20250408
  Transmission Date: 20250717
  Serious: No
  Sender: VERTEX
  Company Number: US-VERTEX PHARMACEUTICALS-2023-005422

PATIENT
  Weight: 77 kg

DRUGS (4)
  1. TRIKAFTA [Suspect]
     Active Substance: ELEXACAFTOR\IVACAFTOR\TEZACAFTOR
     Indication: Cystic fibrosis
     Route: 048
  2. TRIKAFTA [Suspect]
     Active Substance: ELEXACAFTOR\IVACAFTOR\TEZACAFTOR
     Route: 048
  3. PULMOZYME [Concomitant]
     Active Substance: DORNASE ALFA
  4. ALBUTEROL [Concomitant]
     Active Substance: ALBUTEROL
     Dosage: TWICE DAILY

REACTIONS (6)
  - Weight increased [Recovering/Resolving]
  - Glucose tolerance impaired [Recovering/Resolving]
  - Pneumonia [Unknown]
  - Respiratory disorder [Unknown]
  - Infective pulmonary exacerbation of cystic fibrosis [Unknown]
  - COVID-19 [Unknown]
